FAERS Safety Report 23080615 (Version 2)
Quarter: 2023Q4

REPORT INFORMATION
  Report Type: Spontaneous
  Country: US (occurrence: US)
  Receive Date: 20231018
  Receipt Date: 20231204
  Transmission Date: 20240110
  Serious: No
  Sender: FDA-Public Use
  Company Number: US-PFIZER INC-PV202300170029

PATIENT
  Age: 66 Year
  Sex: Male

DRUGS (4)
  1. XELJANZ [Suspect]
     Active Substance: TOFACITINIB CITRATE
     Indication: Colitis ulcerative
     Dosage: 5 MG, 2X/DAY
     Route: 048
     Dates: start: 20230910
  2. HUMIRA [Concomitant]
     Active Substance: ADALIMUMAB
     Dosage: 2/BOX
  3. BUDESONIDE [Concomitant]
     Active Substance: BUDESONIDE
     Dosage: 3 DF
  4. BUDESONIDE [Concomitant]
     Active Substance: BUDESONIDE
     Dosage: 1 DF

REACTIONS (3)
  - Rash pruritic [Not Recovered/Not Resolved]
  - Condition aggravated [Not Recovered/Not Resolved]
  - Product dose omission in error [Unknown]
